FAERS Safety Report 11551522 (Version 1)
Quarter: 2015Q3

REPORT INFORMATION
  Report Type: Spontaneous
  Country: IT (occurrence: IT)
  Receive Date: 20150925
  Receipt Date: 20150925
  Transmission Date: 20151125
  Serious: Yes (Other)
  Sender: FDA-Public Use
  Company Number: PHHY2015IT112953

PATIENT
  Age: 51 Year
  Sex: Female

DRUGS (2)
  1. OXALIPLATIN. [Suspect]
     Active Substance: OXALIPLATIN
     Indication: COLON CANCER
     Dosage: 190 MG, CYCLIC
     Route: 042
  2. ERBITUX [Suspect]
     Active Substance: CETUXIMAB
     Indication: COLON CANCER
     Dosage: 375 MG, CYCLIC
     Route: 042

REACTIONS (4)
  - Hypertrichosis [Unknown]
  - Rash [Unknown]
  - Pruritus [Unknown]
  - Neutropenia [Unknown]

NARRATIVE: CASE EVENT DATE: 20150916
